FAERS Safety Report 5638195-4 (Version None)
Quarter: 2008Q1

REPORT INFORMATION
  Report Type: 
  Country: None (occurrence: None)
  Receive Date: 20080226
  Receipt Date: 20080212
  Transmission Date: 20080703
  Serious: Yes (Hospitalization)
  Sender: FDA-Public Use
  Company Number: HU-ELI_LILLY_AND_COMPANY-HU200712002072

PATIENT
  Sex: Female
  Weight: 65 kg

DRUGS (5)
  1. SOMATROPIN [Suspect]
     Indication: GROWTH HORMONE DEFICIENCY
     Dates: start: 20050413, end: 20050701
  2. L-THYROXIN [Concomitant]
     Indication: HYPOTHYROIDISM
  3. CORTEF [Concomitant]
     Indication: ADRENAL INSUFFICIENCY
  4. TRISEQUENS [Concomitant]
     Indication: HYPOGONADISM
  5. NOCUTIL [Concomitant]
     Indication: DIABETES INSIPIDUS

REACTIONS (4)
  - EYE INJURY [None]
  - FACE INJURY [None]
  - FEMUR FRACTURE [None]
  - ROAD TRAFFIC ACCIDENT [None]
